FAERS Safety Report 4583126-1 (Version None)
Quarter: 2005Q1

REPORT INFORMATION
  Report Type: 
  Country: None (occurrence: None)
  Receive Date: 20050125
  Receipt Date: 20041103
  Transmission Date: 20050727
  Serious: No
  Sender: FDA-Public Use
  Company Number: USA041081896

PATIENT
  Age: 77 Year
  Sex: Female

DRUGS (3)
  1. FORTEO [Suspect]
     Indication: OSTEOPOROSIS
     Dates: start: 20041007
  2. TIAZAC [Concomitant]
  3. CALCIUM GLUCONATE [Concomitant]

REACTIONS (8)
  - ASTHENIA [None]
  - CONSTIPATION [None]
  - CONTUSION [None]
  - DIZZINESS [None]
  - HYPERTENSION [None]
  - INJECTION SITE HAEMORRHAGE [None]
  - MUSCULAR WEAKNESS [None]
  - NERVOUSNESS [None]
